FAERS Safety Report 8518088-5 (Version None)
Quarter: 2012Q3

REPORT INFORMATION
  Report Type: 
  Country: None (occurrence: None)
  Receive Date: 20120718
  Receipt Date: 20110926
  Transmission Date: 20120928
  Serious: Yes (Hospitalization)
  Sender: FDA-Public Use
  Company Number: US-BRISTOL-MYERS SQUIBB COMPANY-16062820

PATIENT
  Age: 65 Year
  Sex: Female
  Weight: 57 kg

DRUGS (2)
  1. COUMADIN [Suspect]
     Dosage: 1DF: 2.5MG OR 5MG.
     Dates: start: 20110817
  2. MARIJUANA [Concomitant]

REACTIONS (3)
  - INTERNATIONAL NORMALISED RATIO ABNORMAL [None]
  - ANAEMIA [None]
  - INTESTINAL HAEMORRHAGE [None]
